FAERS Safety Report 7361981-X (Version None)
Quarter: 2011Q1

REPORT INFORMATION
  Report Type: 
  Country: None (occurrence: None)
  Receive Date: 20110315
  Receipt Date: 20110315
  Transmission Date: 20110831
  Serious: Yes (Life-Threatening, Other)
  Sender: FDA-Public Use
  Company Number: None

PATIENT
  Age: 46 Year
  Sex: Female
  Weight: 56.6996 kg

DRUGS (2)
  1. LORAZAPAM - 1 MG [Suspect]
     Indication: ANXIETY
     Dosage: 1 MG 1 PER DAY OR AS NEEDED
     Dates: start: 20100805, end: 20100930
  2. LORAZAPAM - 1 MG [Suspect]
     Indication: PAIN
     Dosage: 1 MG 1 PER DAY OR AS NEEDED
     Dates: start: 20100805, end: 20100930

REACTIONS (12)
  - DYSPNOEA [None]
  - RASH [None]
  - PRURITUS [None]
  - HYPERSENSITIVITY [None]
  - MYALGIA [None]
  - PHARYNGEAL OEDEMA [None]
  - INSOMNIA [None]
  - HEADACHE [None]
  - WITHDRAWAL SYNDROME [None]
  - ANXIETY [None]
  - IRRITABILITY [None]
  - MUSCLE SPASMS [None]
